FAERS Safety Report 16148724 (Version 2)
Quarter: 2019Q2

REPORT INFORMATION
  Report Type: Spontaneous
  Country: US (occurrence: US)
  Receive Date: 20190402
  Receipt Date: 20190402
  Transmission Date: 20190711
  Serious: Yes (Other)
  Sender: FDA-Public Use
  Company Number: PHEH2019US013627

PATIENT
  Sex: Male

DRUGS (1)
  1. OMNIPRED [Suspect]
     Active Substance: PREDNISOLONE ACETATE
     Indication: PRODUCT USED FOR UNKNOWN INDICATION
     Route: 047

REACTIONS (4)
  - Visual impairment [Unknown]
  - Basedow^s disease [Unknown]
  - Eyelid ptosis [Unknown]
  - Diplopia [Unknown]
